FAERS Safety Report 25890118 (Version 2)
Quarter: 2025Q4

REPORT INFORMATION
  Report Type: Spontaneous
  Country: EU (occurrence: EU)
  Receive Date: 20251007
  Receipt Date: 20251209
  Transmission Date: 20260117
  Serious: Yes (Other)
  Sender: RANBAXY
  Company Number: EU-SUN PHARMACEUTICAL INDUSTRIES LTD-2025RR-530267

PATIENT
  Age: 64 Year
  Sex: Female

DRUGS (8)
  1. OMEPRAZOLE [Suspect]
     Active Substance: OMEPRAZOLE
     Indication: Product used for unknown indication
     Dosage: OMEPRAZOLE 20 MG GASTRO-RESISTANT CAPSULES
     Route: 048
     Dates: start: 2023
  2. TORSEMIDE [Suspect]
     Active Substance: TORSEMIDE
     Indication: Product used for unknown indication
     Dosage: DIURESIX 10 MG DIVISIBLE TABLETS 1 TABLET DAILY
     Route: 048
  3. Luvion [Concomitant]
     Indication: Product used for unknown indication
     Dosage: LUVION 50 MG TABLETS
     Route: 048
  4. ROCALTROL [Concomitant]
     Active Substance: CALCITRIOL
     Indication: Product used for unknown indication
     Dosage: ROCALTROL 0.25 MCG SOFT CAPSULES
     Route: 048
  5. BISOPROLOL [Concomitant]
     Active Substance: BISOPROLOL
     Indication: Product used for unknown indication
     Dosage: SEQUACOR 2.5 MG DIVISIBLE COATED TABLETS
     Route: 048
  6. AMIODARONE [Concomitant]
     Active Substance: AMIODARONE
     Indication: Product used for unknown indication
     Dosage: AMIODAR 200 MG DIVISIBLE TABLETS
     Route: 048
  7. Cacit [Concomitant]
     Indication: Product used for unknown indication
     Dosage: CACIT 1000 1,000 MG EFFERVESCENT TABLETS
     Route: 048
  8. EZETIMIBE\ROSUVASTATIN CALCIUM [Concomitant]
     Active Substance: EZETIMIBE\ROSUVASTATIN CALCIUM
     Indication: Product used for unknown indication
     Dosage: ROSUMIBE 5 MG/10 MG TABLETS
     Route: 048

REACTIONS (4)
  - Hypokalaemia [Recovered/Resolved]
  - Hypocalcaemia [Recovered/Resolved]
  - Hyperuricaemia [Recovered/Resolved]
  - Blood sodium abnormal [Recovered/Resolved]

NARRATIVE: CASE EVENT DATE: 20250601
